FAERS Safety Report 10611511 (Version 1)
Quarter: 2014Q4

REPORT INFORMATION
  Report Type: Spontaneous
  Country: IT (occurrence: IT)
  Receive Date: 20141126
  Receipt Date: 20141126
  Transmission Date: 20150529
  Serious: Yes (Other)
  Sender: FDA-Public Use
  Company Number: IT-MYLANLABS-2014M1011843

PATIENT

DRUGS (4)
  1. FLUVOXAMINE [Suspect]
     Active Substance: FLUVOXAMINE
     Route: 065
  2. DULOXETINE [Concomitant]
     Active Substance: DULOXETINE
     Indication: BIPOLAR II DISORDER
     Route: 065
  3. CITALOPRAM [Suspect]
     Active Substance: CITALOPRAM HYDROBROMIDE
     Indication: BIPOLAR II DISORDER
     Route: 065
  4. AMITRIPTYLINE [Concomitant]
     Active Substance: AMITRIPTYLINE
     Indication: BIPOLAR II DISORDER
     Route: 065

REACTIONS (1)
  - Bipolar disorder [Recovered/Resolved]
